FAERS Safety Report 5918925-4 (Version None)
Quarter: 2008Q4

REPORT INFORMATION
  Report Type: 
  Country: None (occurrence: None)
  Receive Date: 20081015
  Receipt Date: 20081008
  Transmission Date: 20090506
  Serious: No
  Sender: FDA-Public Use
  Company Number: DE-ROCHE-584279

PATIENT
  Sex: Male

DRUGS (1)
  1. BONDRONAT [Suspect]
     Dosage: DOSE: 6 MG IN 100 ML NACL.
     Route: 042
     Dates: start: 20080813

REACTIONS (2)
  - BODY TEMPERATURE INCREASED [None]
  - MYALGIA [None]
